FAERS Safety Report 8947840 (Version 1)
Quarter: 2012Q4

REPORT INFORMATION
  Report Type: 
  Country: US (occurrence: US)
  Receive Date: 20121204
  Receipt Date: 20121204
  Transmission Date: 20130627
  Serious: Yes (Hospitalization, Other)
  Sender: FDA-Public Use
  Company Number: US-PFIZER INC-2012300596

PATIENT
  Age: 5 Year
  Sex: Male

DRUGS (1)
  1. ETHOSUXIMIDE [Suspect]
     Dosage: UNK

REACTIONS (7)
  - Drug reaction with eosinophilia and systemic symptoms [Recovered/Resolved]
  - Rash morbilliform [Recovered/Resolved]
  - Oropharyngeal pain [Recovered/Resolved]
  - Pyrexia [Recovered/Resolved]
  - Generalised oedema [Recovered/Resolved]
  - Lymphadenopathy [Recovering/Resolving]
  - Hypoalbuminaemia [Unknown]
